FAERS Safety Report 10397409 (Version 1)
Quarter: 2014Q3

REPORT INFORMATION
  Report Type: Spontaneous
  Country: US (occurrence: US)
  Receive Date: 20140820
  Receipt Date: 20140820
  Transmission Date: 20150326
  Serious: Yes (Other)
  Sender: FDA-Public Use
  Company Number: US-PFIZER INC-2014229420

PATIENT
  Age: 54 Year
  Sex: Female
  Weight: 90.7 kg

DRUGS (1)
  1. PREMPRO [Suspect]
     Active Substance: ESTROGENS, CONJUGATED\MEDROXYPROGESTERONE ACETATE
     Indication: HOT FLUSH
     Dosage: ESTROGENS CONJUGATED 0.3MG/MEDROXYPROGESTERONE ACETATE 1.5MG, DAILY
     Dates: end: 2014

REACTIONS (4)
  - Swelling [Not Recovered/Not Resolved]
  - Vaginal discharge [Not Recovered/Not Resolved]
  - Malaise [Not Recovered/Not Resolved]
  - Urinary tract infection fungal [Not Recovered/Not Resolved]

NARRATIVE: CASE EVENT DATE: 2014
